FAERS Safety Report 8951247 (Version 1)
Quarter: 2012Q4

REPORT INFORMATION
  Report Type: 
  Country: IE (occurrence: IE)
  Receive Date: 20121207
  Receipt Date: 20121207
  Transmission Date: 20130627
  Serious: Yes (Death)
  Sender: FDA-Public Use
  Company Number: IE-AMGEN-IRLSP2012029412

PATIENT
  Sex: Male

DRUGS (1)
  1. ARANESP [Suspect]
     Indication: RENAL FAILURE CHRONIC
     Dosage: 100 mug, q2wk
     Route: 058
     Dates: start: 20120131

REACTIONS (3)
  - Death [Fatal]
  - Underdose [Unknown]
  - Blood magnesium decreased [Recovered/Resolved]
